FAERS Safety Report 17178784 (Version 1)
Quarter: 2019Q4

REPORT INFORMATION
  Report Type: Spontaneous
  Country: CN (occurrence: CN)
  Receive Date: 20191219
  Receipt Date: 20191219
  Transmission Date: 20200122
  Serious: Yes (Hospitalization)
  Sender: FDA-Public Use
  Company Number: NVSC2019CN067949

PATIENT
  Age: 71 Year
  Sex: Male
  Weight: 55 kg

DRUGS (1)
  1. SACUBITRIL,VALSARTAN [Suspect]
     Active Substance: SACUBITRIL\VALSARTAN
     Indication: CARDIOMYOPATHY
     Dosage: 0.5 DF, BID
     Route: 048
     Dates: start: 20190612, end: 20191009

REACTIONS (2)
  - Cognitive disorder [Unknown]
  - Organic brain syndrome [Unknown]

NARRATIVE: CASE EVENT DATE: 20190929
